FAERS Safety Report 21173783 (Version 1)
Quarter: 2022Q3

REPORT INFORMATION
  Report Type: Spontaneous
  Country: US (occurrence: US)
  Receive Date: 20220804
  Receipt Date: 20220804
  Transmission Date: 20221027
  Serious: No
  Sender: FDA-Public Use
  Company Number: US-PERRIGO-22US000082

PATIENT
  Age: 82 Year
  Sex: Female
  Weight: 77.098 kg

DRUGS (3)
  1. LORATADINE [Suspect]
     Active Substance: LORATADINE
     Indication: Rhinorrhoea
     Dosage: 10 MG, QD, PRN
     Route: 048
     Dates: start: 202101, end: 20211203
  2. LORATADINE [Suspect]
     Active Substance: LORATADINE
     Indication: Headache
     Dosage: 10 TO 20 MG, QD, PRN
     Route: 048
     Dates: start: 20211204
  3. LORATADINE [Suspect]
     Active Substance: LORATADINE
     Indication: Lacrimation increased

REACTIONS (3)
  - Therapeutic product effect incomplete [Unknown]
  - Incorrect dose administered [Not Recovered/Not Resolved]
  - Off label use [Not Recovered/Not Resolved]

NARRATIVE: CASE EVENT DATE: 20210101
